FAERS Safety Report 17103590 (Version 1)
Quarter: 2019Q4

REPORT INFORMATION
  Report Type: Spontaneous
  Country: US (occurrence: US)
  Receive Date: 20191202
  Receipt Date: 20191202
  Transmission Date: 20200122
  Serious: Yes (Hospitalization)
  Sender: FDA-Public Use
  Company Number: None

PATIENT
  Age: 46 Year
  Weight: 154.9 kg

DRUGS (5)
  1. DABIGATRAN [Suspect]
     Active Substance: DABIGATRAN
     Indication: TRANSIENT ISCHAEMIC ATTACK
     Route: 048
     Dates: start: 20151109
  2. FUROSEMIDE 40MG DAILY [Concomitant]
  3. LEVOTHYROXINE 250MCG DAILY [Concomitant]
  4. SERTRALINE 150MG DAILY [Concomitant]
  5. DOXAZOSIN 4MG DAILY [Concomitant]

REACTIONS (5)
  - Fall [None]
  - Dizziness [None]
  - Contusion [None]
  - Dehydration [None]
  - Blood lactic acid increased [None]

NARRATIVE: CASE EVENT DATE: 20160729
